FAERS Safety Report 9696083 (Version 1)
Quarter: 2013Q4

REPORT INFORMATION
  Report Type: Report from Study
  Country: JP (occurrence: JP)
  Receive Date: 20131119
  Receipt Date: 20131119
  Transmission Date: 20140711
  Serious: Yes (Death, Life-Threatening, Hospitalization)
  Sender: FDA-Public Use
  Company Number: JP-GLAXOSMITHKLINE-B0914138A

PATIENT
  Age: 66 Year
  Sex: Female
  Weight: 63 kg

DRUGS (5)
  1. HYCAMTIN [Suspect]
     Indication: OVARIAN EPITHELIAL CANCER RECURRENT
     Dosage: 1MGM2 PER DAY
     Route: 042
     Dates: start: 20130213, end: 20130217
  2. HYCAMTIN [Suspect]
     Indication: OVARIAN EPITHELIAL CANCER RECURRENT
     Dosage: 1MGM2 PER DAY
     Route: 042
     Dates: start: 20120312, end: 20120316
  3. HYCAMTIN [Suspect]
     Indication: OVARIAN EPITHELIAL CANCER RECURRENT
     Dosage: 1.25MGM2 PER DAY
     Route: 042
     Dates: start: 20120415, end: 20120419
  4. HYCAMTIN [Suspect]
     Indication: OVARIAN EPITHELIAL CANCER RECURRENT
     Dosage: 1.25MGM2 PER DAY
     Route: 042
     Dates: start: 20120521, end: 20120525
  5. NEUTROGIN [Concomitant]
     Dosage: 100MCG PER DAY
     Route: 058
     Dates: start: 20120427, end: 20120607

REACTIONS (4)
  - Haematochezia [Recovered/Resolved]
  - White blood cell count decreased [Recovered/Resolved]
  - Neutrophil count decreased [Recovered/Resolved]
  - Disease progression [Fatal]
